FAERS Safety Report 24752306 (Version 1)
Quarter: 2024Q4

REPORT INFORMATION
  Report Type: Report from Study
  Country: PT (occurrence: PT)
  Receive Date: 20241219
  Receipt Date: 20241219
  Transmission Date: 20250115
  Serious: Yes (Other)
  Sender: ABBVIE
  Company Number: PT-ABBVIE-6049981

PATIENT
  Age: 67 Year
  Sex: Female

DRUGS (7)
  1. CARBIDOPA\LEVODOPA [Suspect]
     Active Substance: CARBIDOPA\LEVODOPA
     Indication: Parkinson^s disease
     Dosage: 20 MG + 5 MG (PEG)?FREQUENCY TEXT: MORN:9CC;MAIN:5.6CC/H;EXTRA:4.2CC
     Route: 050
     Dates: start: 20241128
  2. CARBIDOPA\LEVODOPA [Suspect]
     Active Substance: CARBIDOPA\LEVODOPA
     Dosage: 20 MG + 5 MG, END DATE: 2024?FREQUENCY TEXT: MORN:15CC;MAIN:4.3CC/H;EXTRA:1CC
     Route: 050
     Dates: start: 20241010
  3. CARBIDOPA\LEVODOPA [Suspect]
     Active Substance: CARBIDOPA\LEVODOPA
     Dosage: 20 MG + 5 MG, START DATE: 2024?FREQUENCY TEXT: MORN:9CC;MAIN:5.6CC/H;EXTRA:4.2CC
     Route: 050
     Dates: end: 20241128
  4. SINEMET CR [Concomitant]
     Active Substance: CARBIDOPA\LEVODOPA
     Indication: Product used for unknown indication
     Dosage: 2 TABLET?FREQUENCY TEXT: AT BEDTIME,?START DATE TEXT: BEFORE DUODOPA
     Route: 048
  5. CLOZAPINE [Concomitant]
     Active Substance: CLOZAPINE
     Indication: Product used for unknown indication
     Dosage: FORM STRENGTH: 12.5 MILLIGRAM, START DATE TEXT: BEFORE DUODOPA
     Route: 048
  6. Folifer [Concomitant]
     Indication: Product used for unknown indication
     Dosage: 1 TABLET, START DATE TEXT: BEFORE DUODOPA
     Route: 048
  7. RIVOTRIL [Concomitant]
     Active Substance: CLONAZEPAM
     Indication: Product used for unknown indication
     Dosage: 1 TABLET FORM STRENGTH: 0.5 MILLIGRAM, FREQUENCY TEXT: AT BEDTIME, START DATE TEXT: BEFORE DUODOPA
     Route: 048

REACTIONS (3)
  - Tooth loss [Recovered/Resolved]
  - Lip injury [Recovering/Resolving]
  - Fall [Recovered/Resolved]

NARRATIVE: CASE EVENT DATE: 20241129
